FAERS Safety Report 6307903-1 (Version None)
Quarter: 2009Q3

REPORT INFORMATION
  Report Type: 
  Country: None (occurrence: None)
  Receive Date: 20090812
  Receipt Date: 20090812
  Transmission Date: 20100115
  Serious: Yes (Other)
  Sender: FDA-Public Use
  Company Number: None

PATIENT
  Sex: Female
  Weight: 58.9676 kg

DRUGS (2)
  1. GABAPENTIN [Suspect]
     Indication: NERVE INJURY
     Dosage: 1 1 PO
     Route: 048
     Dates: start: 20090811, end: 20090811
  2. GABAPENTIN [Suspect]
     Indication: PAIN IN EXTREMITY
     Dosage: 1 1 PO
     Route: 048
     Dates: start: 20090811, end: 20090811

REACTIONS (11)
  - BALANCE DISORDER [None]
  - BURNING SENSATION [None]
  - DYSPHEMIA [None]
  - FEAR [None]
  - FEELING ABNORMAL [None]
  - JOINT WARMTH [None]
  - PARAESTHESIA [None]
  - PHARYNGEAL HYPOAESTHESIA [None]
  - SENSATION OF HEAVINESS [None]
  - SENSORY DISTURBANCE [None]
  - SPEECH DISORDER [None]
